FAERS Safety Report 18667841 (Version 1)
Quarter: 2020Q4

REPORT INFORMATION
  Report Type: Spontaneous
  Country: FR (occurrence: FR)
  Receive Date: 20201228
  Receipt Date: 20201228
  Transmission Date: 20210114
  Serious: Yes (Hospitalization)
  Sender: FDA-Public Use
  Company Number: FR-SA-2020SA369263

PATIENT

DRUGS (3)
  1. RIFATER [Suspect]
     Active Substance: ISONIAZID\PYRAZINAMIDE\RIFAMPIN
     Indication: TUBERCULOSIS
     Dosage: 5 DF, QD
     Route: 048
     Dates: start: 20200208
  2. FLUDROCORTISONE ACETATE. [Interacting]
     Active Substance: FLUDROCORTISONE ACETATE
     Indication: ADRENAL GLAND TUBERCULOSIS
     Dosage: 50 UG, QD
     Route: 048
     Dates: start: 20200208
  3. HYDROCORTISONE ROUSSEL [Interacting]
     Active Substance: HYDROCORTISONE
     Indication: ADRENAL GLAND TUBERCULOSIS
     Dosage: 1.5 DF, QD
     Route: 048
     Dates: start: 20200208

REACTIONS (3)
  - Drug ineffective [Recovering/Resolving]
  - Secondary adrenocortical insufficiency [Recovering/Resolving]
  - Drug interaction [Recovering/Resolving]

NARRATIVE: CASE EVENT DATE: 20200213
